FAERS Safety Report 9861382 (Version 2)
Quarter: 2014Q1

REPORT INFORMATION
  Report Type: Report from Study
  Country: ID (occurrence: ID)
  Receive Date: 20140203
  Receipt Date: 20140203
  Transmission Date: 20141002
  Serious: Yes (Death, Hospitalization)
  Sender: FDA-Public Use
  Company Number: ID-ROCHE-1307804

PATIENT
  Age: 69 Year
  Sex: Female

DRUGS (3)
  1. BONVIVA [Suspect]
     Indication: BONE PAIN
     Route: 048
     Dates: start: 20131102
  2. THALIDOMIDE [Concomitant]
     Route: 048
  3. FOLIC ACID [Concomitant]
     Route: 048

REACTIONS (3)
  - Myelodysplastic syndrome [Fatal]
  - Thrombocytopenia [Unknown]
  - Anaemia [Unknown]
